FAERS Safety Report 4436250-8 (Version None)
Quarter: 2004Q3

REPORT INFORMATION
  Report Type: 
  Country: None (occurrence: None)
  Receive Date: 20040830
  Receipt Date: 20040611
  Transmission Date: 20050211
  Serious: No
  Sender: FDA-Public Use
  Company Number: US-BRISTOL-MYERS SQUIBB COMPANY-12612925

PATIENT
  Sex: Female
  Weight: 48 kg

DRUGS (6)
  1. ERBITUX [Suspect]
     Indication: COLON CANCER
     Route: 042
  2. IRINOTECAN [Concomitant]
  3. ASPIRIN [Concomitant]
  4. ATIVAN [Concomitant]
  5. HERBAL PREPARATION [Concomitant]
  6. PROTONIX [Concomitant]

REACTIONS (2)
  - ABDOMINAL PAIN [None]
  - RASH PAPULAR [None]
